FAERS Safety Report 14555899 (Version 4)
Quarter: 2018Q2

REPORT INFORMATION
  Report Type: Report from Study
  Country: None (occurrence: US)
  Receive Date: 20180221
  Receipt Date: 20180416
  Transmission Date: 20180711
  Serious: Yes (Hospitalization, Other)
  Sender: FDA-Public Use
  Company Number: US-ABBVIE-17K-163-1896504-00

PATIENT
  Age: 87 Year
  Sex: Male
  Weight: 50.85 kg

DRUGS (4)
  1. PANTOPRAZOLE [Concomitant]
     Active Substance: PANTOPRAZOLE
     Indication: GASTROOESOPHAGEAL REFLUX DISEASE
  2. DOXAZOSIN [Concomitant]
     Active Substance: DOXAZOSIN\DOXAZOSIN MESYLATE
     Indication: HYPERTENSION
  3. HUMIRA [Suspect]
     Active Substance: ADALIMUMAB
     Route: 058
     Dates: start: 2017
  4. HUMIRA [Suspect]
     Active Substance: ADALIMUMAB
     Indication: CROHN^S DISEASE
     Route: 058
     Dates: start: 20150915

REACTIONS (32)
  - Fall [Recovered/Resolved]
  - Cardiac failure congestive [Not Recovered/Not Resolved]
  - Fluid retention [Unknown]
  - Bone marrow failure [Recovered/Resolved]
  - Anaemia [Unknown]
  - Wrist fracture [Recovered/Resolved]
  - Protein total decreased [Recovered/Resolved]
  - Dysphagia [Unknown]
  - Hypoxia [Recovered/Resolved]
  - Decreased appetite [Not Recovered/Not Resolved]
  - Skin wound [Recovered/Resolved]
  - Insomnia [Recovered/Resolved]
  - Crohn^s disease [Not Recovered/Not Resolved]
  - Hypertension [Unknown]
  - Pneumonia [Unknown]
  - Blood calcium decreased [Not Recovered/Not Resolved]
  - Asthenia [Unknown]
  - Hypotension [Not Recovered/Not Resolved]
  - Wound [Recovered/Resolved]
  - Dyspnoea [Unknown]
  - Oxygen saturation decreased [Not Recovered/Not Resolved]
  - Skin cancer [Recovering/Resolving]
  - Weight decreased [Recovering/Resolving]
  - Blood pressure decreased [Unknown]
  - Genital swelling [Unknown]
  - Cough [Recovered/Resolved]
  - Viral infection [Recovered/Resolved]
  - Blood disorder [Unknown]
  - Hospice care [Unknown]
  - Wound secretion [Recovered/Resolved]
  - Productive cough [Recovered/Resolved]
  - Peripheral swelling [Unknown]

NARRATIVE: CASE EVENT DATE: 201612
